FAERS Safety Report 4686636-1 (Version None)
Quarter: 2005Q2

REPORT INFORMATION
  Report Type: 
  Country: None (occurrence: None)
  Receive Date: 20050608
  Receipt Date: 20050526
  Transmission Date: 20051028
  Serious: Yes (Life-Threatening)
  Sender: FDA-Public Use
  Company Number: 2005079919

PATIENT
  Age: 36 Year
  Sex: Female

DRUGS (3)
  1. DOXORUBICIN HYDROCHLORIDE [Suspect]
     Indication: LEIOMYOSARCOMA METASTATIC
     Dosage: 60 MG/M2 (CYCLICAL)
  2. IFOSFAMIDE [Suspect]
     Indication: LEIOMYOSARCOMA METASTATIC
     Dosage: 4000 MG/M2 (CYCLICAL)
  3. MESNA [Suspect]
     Indication: LEIOMYOSARCOMA METASTATIC
     Dosage: 4000 MG/M2 (CYCLICAL)

REACTIONS (5)
  - ATRIOVENTRICULAR BLOCK COMPLETE [None]
  - ATRIOVENTRICULAR BLOCK SECOND DEGREE [None]
  - DISEASE PROGRESSION [None]
  - INFUSION RELATED REACTION [None]
  - SYNCOPE [None]
